FAERS Safety Report 18768137 (Version 6)
Quarter: 2022Q1

REPORT INFORMATION
  Report Type: Spontaneous
  Country: US (occurrence: US)
  Receive Date: 20210121
  Receipt Date: 20220110
  Transmission Date: 20220423
  Serious: Yes (Other)
  Sender: FDA-Public Use
  Company Number: US-PFIZER INC-2021025634

PATIENT
  Age: 11 Year
  Sex: Female
  Weight: 32.79 kg

DRUGS (1)
  1. GENOTROPIN [Suspect]
     Active Substance: SOMATROPIN
     Indication: Growth hormone deficiency
     Dosage: 1.1 MG
     Dates: start: 202012

REACTIONS (6)
  - Glucocorticoid deficiency [Recovered/Resolved]
  - Drug dose omission by device [Unknown]
  - Device leakage [Unknown]
  - Device physical property issue [Unknown]
  - Device mechanical issue [Unknown]
  - Device breakage [Unknown]
